FAERS Safety Report 11603315 (Version 2)
Quarter: 2015Q4

REPORT INFORMATION
  Report Type: Spontaneous
  Country: US (occurrence: US)
  Receive Date: 20151007
  Receipt Date: 20151029
  Transmission Date: 20160304
  Serious: Yes (Other)
  Sender: FDA-Public Use
  Company Number: US-AUROBINDO-AUR-APL-2015-08798

PATIENT
  Age: 80 Year
  Sex: Female

DRUGS (7)
  1. METOPROLOL TARTRATE TABLETS USP 25 MG [Suspect]
     Active Substance: METOPROLOL TARTRATE
     Indication: PRODUCT USED FOR UNKNOWN INDICATION
     Dosage: 25 MG,1 TABLET TWO TIMES A DAY
     Route: 048
     Dates: start: 20130219, end: 20150303
  2. NORVASC [Suspect]
     Active Substance: AMLODIPINE BESYLATE
     Indication: HYPERTENSION
     Dosage: 5 MG, 1 TABLET DAILY
     Route: 048
     Dates: start: 20131125, end: 20150303
  3. ALBUTEROL SULFATE. [Concomitant]
     Active Substance: ALBUTEROL SULFATE
     Indication: PRODUCT USED FOR UNKNOWN INDICATION
     Dosage: 2.5 MG/3ML, 1 VIAL  4 TIME A DAY
     Dates: start: 20130206, end: 20130904
  4. AZASITE [Suspect]
     Active Substance: AZITHROMYCIN MONOHYDRATE
     Indication: PRODUCT USED FOR UNKNOWN INDICATION
     Dosage: TWICE DAILY 8 TO 12 HOURS
     Route: 047
     Dates: start: 20141027, end: 20141027
  5. AMLODIPINE BESYLATE. [Concomitant]
     Active Substance: AMLODIPINE BESYLATE
     Indication: HYPERTENSION
     Dosage: 5 MG, DAILY, 1 TABLET DAILY
     Route: 048
     Dates: start: 20130219, end: 20131022
  6. ASPIRIN. [Concomitant]
     Active Substance: ASPIRIN
     Indication: PRODUCT USED FOR UNKNOWN INDICATION
     Dosage: 1 TABLET DAILY
     Route: 048
     Dates: start: 20130720, end: 20140116
  7. ALBUTEROL SULFATE. [Concomitant]
     Active Substance: ALBUTEROL SULFATE
     Dosage: 0.63 MG/3ML, EVERY 4 TO 6 HOUR NEEDED
     Dates: start: 20130129, end: 20130129

REACTIONS (5)
  - Malaise [Unknown]
  - Oedema peripheral [Unknown]
  - Micturition urgency [Unknown]
  - Nausea [Recovered/Resolved]
  - Vomiting [Unknown]

NARRATIVE: CASE EVENT DATE: 201508
